FAERS Safety Report 8909012 (Version 1)
Quarter: 2012Q4

REPORT INFORMATION
  Report Type: 
  Country: US (occurrence: US)
  Receive Date: 20121114
  Receipt Date: 20121114
  Transmission Date: 20130627
  Serious: No
  Sender: FDA-Public Use
  Company Number: US-MYLANLABS-2012S1008434

PATIENT
  Sex: Male

DRUGS (2)
  1. NADOLOL [Suspect]
     Indication: HYPERTENSION
  2. NADOLOL [Suspect]
     Indication: ARRHYTHMIA

REACTIONS (1)
  - Underdose [Not Recovered/Not Resolved]
